FAERS Safety Report 4624196-1 (Version None)
Quarter: 2005Q1

REPORT INFORMATION
  Report Type: 
  Country: None (occurrence: None)
  Receive Date: 20050331
  Receipt Date: 20050223
  Transmission Date: 20050727
  Serious: Yes (Other)
  Sender: FDA-Public Use
  Company Number: NL-BRISTOL-MYERS SQUIBB COMPANY-12884565

PATIENT
  Age: 75 Year
  Sex: Male

DRUGS (2)
  1. KENACORT [Suspect]
     Indication: BURSITIS
     Route: 014
  2. CARBOCAINE [Interacting]
     Indication: BURSITIS
     Route: 051

REACTIONS (2)
  - ANAPHYLACTIC REACTION [None]
  - DRUG INTERACTION [None]
